FAERS Safety Report 16661277 (Version 5)
Quarter: 2019Q3

REPORT INFORMATION
  Report Type: Report from Study
  Country: JP (occurrence: JP)
  Receive Date: 20190802
  Receipt Date: 20190916
  Transmission Date: 20191004
  Serious: Yes (Hospitalization)
  Sender: FDA-Public Use
  Company Number: JP-B.I. PHARMACEUTICALS,INC./RIDGEFIELD-2019-BI-031694

PATIENT
  Age: 78 Year
  Sex: Female
  Weight: 66.4 kg

DRUGS (10)
  1. NINTEDANIB [Suspect]
     Active Substance: NINTEDANIB
     Indication: INTERSTITIAL LUNG DISEASE
     Route: 048
     Dates: start: 20190708, end: 20190726
  2. SOLIFENACIN SUCCINATE. [Concomitant]
     Active Substance: SOLIFENACIN SUCCINATE
     Indication: HYPERTONIC BLADDER
     Route: 048
  3. INDOMETACIN [Concomitant]
     Active Substance: INDOMETHACIN
     Indication: MYALGIA
     Dosage: APPLICATION/AS NEEDED
     Route: 062
     Dates: start: 20190626
  4. DAIICHI SANKYO ICHOYAKU [Concomitant]
     Indication: ABDOMINAL DISCOMFORT
     Dosage: FINE GRANULES
     Route: 048
     Dates: start: 20190722
  5. SCOPOLAMINE BUTYLBROMIDE [Concomitant]
     Active Substance: SCOPOLAMINE
     Indication: PROPHYLAXIS
     Route: 048
  6. AMLODIPINE BESILATE [Concomitant]
     Active Substance: AMLODIPINE BESYLATE
     Indication: HYPERTENSION
     Route: 048
  7. ESOMEPRAZOLE MAGNESIUM. [Concomitant]
     Active Substance: ESOMEPRAZOLE MAGNESIUM
     Indication: GASTROOESOPHAGEAL REFLUX DISEASE
     Route: 048
  8. FLURBIPROFEN. [Concomitant]
     Active Substance: FLURBIPROFEN
     Indication: MYALGIA
     Route: 062
  9. FLAVINE ADENINE DINUCLEOTIDE [Concomitant]
     Indication: DRY EYE
     Dosage: 1 GTT (DROP)
     Route: 048
     Dates: start: 20181218
  10. ATORVASTATIN CALCIUM. [Concomitant]
     Active Substance: ATORVASTATIN CALCIUM
     Indication: HYPERLIPIDAEMIA
     Route: 048

REACTIONS (1)
  - Liver injury [Recovered/Resolved]

NARRATIVE: CASE EVENT DATE: 20190722
